FAERS Safety Report 21459139 (Version 2)
Quarter: 2022Q4

REPORT INFORMATION
  Report Type: Spontaneous
  Country: GB (occurrence: GB)
  Receive Date: 20221014
  Receipt Date: 20221110
  Transmission Date: 20230112
  Serious: Yes (Other)
  Sender: FDA-Public Use
  Company Number: GB-MHRA-MED-202209271810531730-RTMFC

PATIENT
  Age: 58 Year
  Sex: Female

DRUGS (23)
  1. SULFUR HEXAFLUORIDE [Suspect]
     Active Substance: SULFUR HEXAFLUORIDE
     Indication: Stress echocardiogram
     Dosage: 1 ML, SINGLE
     Route: 042
     Dates: start: 20220905, end: 20220905
  2. SULFUR HEXAFLUORIDE [Suspect]
     Active Substance: SULFUR HEXAFLUORIDE
     Indication: Stress echocardiogram
     Dosage: 1 ML, SINGLE
     Route: 042
     Dates: start: 20220905, end: 20220905
  3. SULFUR HEXAFLUORIDE [Suspect]
     Active Substance: SULFUR HEXAFLUORIDE
     Indication: Stress echocardiogram
     Dosage: 1 ML, SINGLE
     Route: 042
     Dates: start: 20220905, end: 20220905
  4. SULFUR HEXAFLUORIDE [Suspect]
     Active Substance: SULFUR HEXAFLUORIDE
     Dosage: 1 UNK
     Route: 042
     Dates: start: 20220905, end: 20220905
  5. SULFUR HEXAFLUORIDE [Suspect]
     Active Substance: SULFUR HEXAFLUORIDE
     Dosage: 1 UNK
     Route: 042
     Dates: start: 20220905, end: 20220905
  6. SULFUR HEXAFLUORIDE [Suspect]
     Active Substance: SULFUR HEXAFLUORIDE
     Dosage: 1 UNK
     Route: 042
     Dates: start: 20220905, end: 20220905
  7. DOBUTAMINE [Concomitant]
     Active Substance: DOBUTAMINE HYDROCHLORIDE
     Indication: Stress echocardiogram
     Dosage: 40 MCG/ML
     Dates: start: 20220905
  8. ATROPINE [Concomitant]
     Active Substance: ATROPINE
     Indication: Stress echocardiogram
     Dosage: 450 MCG
     Dates: start: 20220905
  9. WARFARIN [Concomitant]
     Active Substance: WARFARIN
  10. ACETAZOLAMIDE [Concomitant]
     Active Substance: ACETAZOLAMIDE
  11. AMLODIPINE [Concomitant]
     Active Substance: AMLODIPINE BESYLATE
  12. ATENOLOL [Concomitant]
     Active Substance: ATENOLOL
  13. CARBOCYSTEINE [Concomitant]
     Active Substance: CARBOCYSTEINE
  14. DAPAGLIFLOZIN [Concomitant]
     Active Substance: DAPAGLIFLOZIN
  15. EZETIMIBE [Concomitant]
     Active Substance: EZETIMIBE
  16. LANSOPRAZOLE [Concomitant]
     Active Substance: LANSOPRAZOLE
  17. LEVOTHYROXINE [Concomitant]
     Active Substance: LEVOTHYROXINE
  18. METFORMIN [Concomitant]
     Active Substance: METFORMIN HYDROCHLORIDE
  19. INSULIN NOS [Concomitant]
     Active Substance: INSULIN NOS
  20. RAMIPRIL [Concomitant]
     Active Substance: RAMIPRIL
  21. ROSUVASTATIN [Concomitant]
     Active Substance: ROSUVASTATIN
  22. SPIRONOLACTONE [Concomitant]
     Active Substance: SPIRONOLACTONE
     Indication: Asthma
  23. ALBUTEROL [Concomitant]
     Active Substance: ALBUTEROL
     Dosage: UNK

REACTIONS (3)
  - Asthma [Recovered/Resolved]
  - Dyspnoea [Unknown]
  - Chest discomfort [Unknown]

NARRATIVE: CASE EVENT DATE: 20220905
